FAERS Safety Report 9822228 (Version 3)
Quarter: 2015Q2

REPORT INFORMATION
  Report Type: Spontaneous
  Country: US (occurrence: US)
  Receive Date: 20140116
  Receipt Date: 20150612
  Transmission Date: 20150821
  Serious: Yes (Hospitalization)
  Sender: FDA-Public Use
  Company Number: US-BAYER-2014-007253

PATIENT
  Age: 31 Year
  Sex: Female
  Weight: 59 kg

DRUGS (1)
  1. MIRENA [Suspect]
     Active Substance: LEVONORGESTREL
     Indication: CONTRACEPTION
     Dosage: 20 MCG/24HR, CONT
     Route: 015
     Dates: start: 200807, end: 201106

REACTIONS (7)
  - Anxiety [None]
  - Cervix carcinoma stage 0 [None]
  - Abortion spontaneous [None]
  - Injury [None]
  - Depression [None]
  - Cervical dysplasia [None]
  - Pain [None]

NARRATIVE: CASE EVENT DATE: 201212
